FAERS Safety Report 26010557 (Version 1)
Quarter: 2025Q4

REPORT INFORMATION
  Report Type: Spontaneous
  Country: US (occurrence: US)
  Receive Date: 20251107
  Receipt Date: 20251107
  Transmission Date: 20260118
  Serious: Yes (Other)
  Sender: HIKMA
  Company Number: HIKM2402981

PATIENT

DRUGS (1)
  1. CHLOROPROCAINE [Suspect]
     Active Substance: CHLOROPROCAINE
     Indication: Product used for unknown indication
     Dosage: UNKNOWN
     Route: 065

REACTIONS (1)
  - Product tampering [Unknown]
